FAERS Safety Report 16124711 (Version 2)
Quarter: 2019Q2

REPORT INFORMATION
  Report Type: Spontaneous
  Country: US (occurrence: US)
  Receive Date: 20190327
  Receipt Date: 20190403
  Transmission Date: 20190711
  Serious: Yes (Hospitalization)
  Sender: FDA-Public Use
  Company Number: US-VERTEX PHARMACEUTICALS-2019-002632

PATIENT
  Age: 28 Year
  Sex: Male

DRUGS (12)
  1. VITAMIN K1 [Concomitant]
     Active Substance: PHYTONADIONE
     Dosage: POWDER
  2. ADVAIR HFA [Concomitant]
     Active Substance: FLUTICASONE PROPIONATE\SALMETEROL XINAFOATE
     Dosage: 250/50
     Route: 055
  3. HYPERSAL [Concomitant]
  4. ZYVOX [Concomitant]
     Active Substance: LINEZOLID
     Dosage: 600 MG
  5. PULMOZYME [Concomitant]
     Active Substance: DORNASE ALFA
     Dosage: 2.5/2.5 MG/ML
  6. KALYDECO [Suspect]
     Active Substance: IVACAFTOR
     Dosage: 150 MG, BID
     Route: 048
  7. E-400 [Concomitant]
     Dosage: 400 UNIT
  8. TOBI [Concomitant]
     Active Substance: TOBRAMYCIN
     Dosage: 300/5 MG/ML
  9. KALYDECO [Suspect]
     Active Substance: IVACAFTOR
     Indication: CYSTIC FIBROSIS
     Dosage: 150 MG, BID
     Route: 048
     Dates: start: 20140925, end: 20181217
  10. ALBUTEROL                          /00139501/ [Concomitant]
     Active Substance: ALBUTEROL
     Dosage: 90 MICROGRAM
     Route: 055
  11. RANITIDINE. [Concomitant]
     Active Substance: RANITIDINE
     Dosage: 150 MG
  12. CREON [Concomitant]
     Active Substance: PANCRELIPASE AMYLASE\PANCRELIPASE LIPASE\PANCRELIPASE PROTEASE
     Dosage: 20 CAP

REACTIONS (1)
  - Infective pulmonary exacerbation of cystic fibrosis [Unknown]

NARRATIVE: CASE EVENT DATE: 20190320
